FAERS Safety Report 7371901-X (Version None)
Quarter: 2011Q1

REPORT INFORMATION
  Report Type: 
  Country: None (occurrence: None)
  Receive Date: 20110322
  Receipt Date: 20110322
  Transmission Date: 20110831
  Serious: Yes (Death)
  Sender: FDA-Public Use
  Company Number: None

PATIENT
  Age: 20 Year
  Sex: Female
  Weight: 65.9 kg

DRUGS (2)
  1. INSULIN PUMP [Suspect]
     Indication: KETOACIDOSIS
     Dosage: 2008 TO TIME OF DEATH
     Dates: start: 20080101
  2. INSULIN PUMP [Suspect]
     Indication: TYPE 1 DIABETES MELLITUS
     Dosage: 2008 TO TIME OF DEATH
     Dates: start: 20080101

REACTIONS (2)
  - DEVICE MALFUNCTION [None]
  - METABOLIC ACIDOSIS [None]
